FAERS Safety Report 5229090-3 (Version None)
Quarter: 2007Q1

REPORT INFORMATION
  Report Type: 
  Country: None (occurrence: None)
  Receive Date: 20061201
  Receipt Date: 20060815
  Transmission Date: 20070707
  Serious: No
  Sender: FDA-Public Use
  Company Number: US200608003316

PATIENT
  Sex: Female

DRUGS (10)
  1. CYMBALTA [Suspect]
     Indication: PAIN IN EXTREMITY
     Dosage: 30 MG
     Dates: start: 20060701
  2. NEURONTIN [Concomitant]
  3. NORVASC [Concomitant]
  4. DIOVAN [Concomitant]
  5. HYDROCHLOROTHIAZIDE [Concomitant]
  6. ZOCOR [Concomitant]
  7. PREDNISONE TAB [Concomitant]
  8. MYLANTA (ALUMINIUM HYDROXIDE GEL, DRIED, MAGNESIUM HYDROXIDE, SIMETICO [Concomitant]
  9. NEXIUM [Concomitant]
  10. FOSAMAX /ITA/ (ALENDRONATE SODIUM) [Concomitant]

REACTIONS (8)
  - ARTHRITIS [None]
  - BURNING SENSATION [None]
  - FEELING HOT [None]
  - NERVE INJURY [None]
  - PAIN IN EXTREMITY [None]
  - PARAESTHESIA [None]
  - PRURITUS [None]
  - STOMACH DISCOMFORT [None]
